FAERS Safety Report 8007497-9 (Version None)
Quarter: 2011Q4

REPORT INFORMATION
  Report Type: 
  Country: None (occurrence: None)
  Receive Date: 20111227
  Receipt Date: 20111220
  Transmission Date: 20120403
  Serious: Yes (Hospitalization)
  Sender: FDA-Public Use
  Company Number: BE-PFIZER INC-2011309506

PATIENT
  Age: 72 Year
  Sex: Female
  Weight: 63 kg

DRUGS (12)
  1. ZANTAC [Concomitant]
     Indication: DYSPEPSIA
     Dosage: UNK
     Dates: start: 20080623
  2. FRAXIPARINE [Concomitant]
     Indication: PROPHYLAXIS
     Dosage: UNK
     Dates: start: 20080710
  3. ZYRTEC [Concomitant]
     Indication: PROPHYLAXIS
     Dosage: UNK
     Dates: start: 20080709, end: 20080709
  4. SOLU-MEDROL [Suspect]
     Dosage: UNK
     Dates: start: 20080716, end: 20080716
  5. ZYRTEC [Concomitant]
     Dosage: UNK
     Dates: start: 20080716, end: 20080716
  6. AMG386 [Concomitant]
     Dosage: UNK
     Dates: start: 20080709
  7. CP-751,871 [Suspect]
     Indication: BREAST CANCER
     Dosage: 1200 MG, EVERY 3 WEEKS
     Route: 042
     Dates: start: 20071221, end: 20080606
  8. EXEMESTANE [Suspect]
     Indication: BREAST CANCER
     Dosage: 25 MG, 1X/DAY
     Route: 048
     Dates: start: 20071221, end: 20080627
  9. LASIX [Concomitant]
     Indication: OEDEMA PERIPHERAL
     Dosage: UNK
     Dates: start: 20080606
  10. BEVACIZUMAB [Concomitant]
     Dosage: UNK
     Dates: start: 20080709
  11. TAXOL [Concomitant]
     Dosage: UNK
     Dates: start: 20080709
  12. SOLU-MEDROL [Suspect]
     Dosage: UNK
     Dates: start: 20080709, end: 20080709

REACTIONS (2)
  - HYPERGLYCAEMIA [None]
  - VOMITING [None]
